FAERS Safety Report 24590673 (Version 2)
Quarter: 2024Q4

REPORT INFORMATION
  Report Type: Spontaneous
  Country: US (occurrence: US)
  Receive Date: 20241107
  Receipt Date: 20241108
  Transmission Date: 20250115
  Serious: No
  Sender: MERCK
  Company Number: US-009507513-2411USA000250

PATIENT
  Sex: Male

DRUGS (1)
  1. DIFICID [Suspect]
     Active Substance: FIDAXOMICIN
     Dosage: PRODUCT QUANTITY: 1 TABLET, TWICE DAILY
     Route: 048
     Dates: start: 202410

REACTIONS (5)
  - Vertigo [Unknown]
  - Product dose omission issue [Unknown]
  - Product size issue [Unknown]
  - Poor quality product administered [Unknown]
  - Product distribution issue [Unknown]

NARRATIVE: CASE EVENT DATE: 20240101
